FAERS Safety Report 4367011-6 (Version None)
Quarter: 2004Q2

REPORT INFORMATION
  Report Type: 
  Country: None (occurrence: None)
  Receive Date: 20040527
  Receipt Date: 20040527
  Transmission Date: 20050107
  Serious: No
  Sender: FDA-Public Use
  Company Number: None

PATIENT
  Age: 72 Year
  Sex: Female
  Weight: 58.0604 kg

DRUGS (5)
  1. PARAPLATIN [Suspect]
     Indication: OVARIAN CANCER
     Dosage: 500 MG IV Q21 DAYS
     Route: 042
     Dates: start: 20040211
  2. PARAPLATIN [Suspect]
     Indication: OVARIAN CANCER
     Dosage: 500 MG IV Q21 DAYS
     Route: 042
     Dates: start: 20040303
  3. PARAPLATIN [Suspect]
     Indication: OVARIAN CANCER
     Dosage: 500 MG IV Q21 DAYS
     Route: 042
     Dates: start: 20040324
  4. PARAPLATIN [Suspect]
     Indication: OVARIAN CANCER
     Dosage: 500 MG IV Q21 DAYS
     Route: 042
     Dates: start: 20040414
  5. PARAPLATIN [Suspect]
     Indication: OVARIAN CANCER
     Dosage: 500 MG IV Q21 DAYS
     Route: 042
     Dates: start: 20040505

REACTIONS (4)
  - DIARRHOEA [None]
  - DIZZINESS [None]
  - NAUSEA [None]
  - VOMITING [None]
